FAERS Safety Report 4597756-4 (Version None)
Quarter: 2005Q1

REPORT INFORMATION
  Report Type: 
  Country: None (occurrence: None)
  Receive Date: 20050125
  Receipt Date: 20040827
  Transmission Date: 20050727
  Serious: No
  Sender: FDA-Public Use
  Company Number: USA040876732

PATIENT
  Age: 79 Year
  Sex: Female
  Weight: 47 kg

DRUGS (4)
  1. FORTEO [Suspect]
     Dosage: 20 UG/1 DAY
     Dates: start: 20040810
  2. EVISTA [Suspect]
     Dosage: 60 MG/ 1 DAY
     Dates: start: 19990101, end: 20040815
  3. CALCIUM CARBONATE + VITAMIN D [Concomitant]
  4. FOSAMAX [Concomitant]

REACTIONS (5)
  - AGITATION [None]
  - BODY HEIGHT DECREASED [None]
  - DEPRESSION [None]
  - FEELING ABNORMAL [None]
  - OSTEOPOROSIS [None]
